FAERS Safety Report 17116436 (Version 4)
Quarter: 2020Q4

REPORT INFORMATION
  Report Type: Spontaneous
  Country: DE (occurrence: DE)
  Receive Date: 20191205
  Receipt Date: 20201221
  Transmission Date: 20210113
  Serious: Yes (Hospitalization)
  Sender: FDA-Public Use
  Company Number: DE-JNJFOC-20191143133

PATIENT
  Age: 57 Year
  Sex: Male

DRUGS (17)
  1. CARIPRAZINE [Suspect]
     Active Substance: CARIPRAZINE
     Route: 065
     Dates: start: 20190214, end: 20190220
  2. DIAZEPAM. [Suspect]
     Active Substance: DIAZEPAM
     Route: 065
     Dates: start: 20190304, end: 20190305
  3. DIAZEPAM. [Suspect]
     Active Substance: DIAZEPAM
     Route: 065
     Dates: start: 20190306, end: 20190318
  4. DIAZEPAM. [Suspect]
     Active Substance: DIAZEPAM
     Indication: PSYCHOTIC SYMPTOM
     Route: 065
     Dates: start: 20190208, end: 20190217
  5. HALDOL [Suspect]
     Active Substance: HALOPERIDOL
     Indication: PSYCHOTIC SYMPTOM
     Route: 065
     Dates: start: 20190319
  6. HALDOL [Suspect]
     Active Substance: HALOPERIDOL
     Route: 065
     Dates: start: 20190208, end: 20190318
  7. CARIPRAZINE [Suspect]
     Active Substance: CARIPRAZINE
     Route: 065
     Dates: start: 20190221
  8. CARIPRAZINE [Suspect]
     Active Substance: CARIPRAZINE
     Route: 065
     Dates: start: 20190207, end: 20190213
  9. LEVOTHYROXINE. [Concomitant]
     Active Substance: LEVOTHYROXINE
     Route: 065
  10. CARIPRAZINE [Suspect]
     Active Substance: CARIPRAZINE
     Indication: PSYCHOTIC SYMPTOM
     Route: 065
     Dates: start: 20190201, end: 20190206
  11. DIAZEPAM. [Suspect]
     Active Substance: DIAZEPAM
     Route: 065
     Dates: start: 20190218, end: 20190220
  12. HALDOL [Suspect]
     Active Substance: HALOPERIDOL
     Route: 065
     Dates: start: 20190118, end: 20190204
  13. PIPAMPERONE [Suspect]
     Active Substance: PIPAMPERONE
     Indication: SLEEP DISORDER THERAPY
     Route: 065
     Dates: start: 20190204
  14. DIAZEPAM. [Suspect]
     Active Substance: DIAZEPAM
     Route: 065
     Dates: start: 20190319
  15. ACETYLSALICYLIC ACID [Concomitant]
     Active Substance: ASPIRIN
  16. HALDOL [Suspect]
     Active Substance: HALOPERIDOL
     Indication: SCHIZOPHRENIA
     Route: 065
     Dates: start: 20190205, end: 20190207
  17. DIAZEPAM. [Suspect]
     Active Substance: DIAZEPAM
     Route: 065
     Dates: start: 20190221, end: 20190227

REACTIONS (7)
  - Aggression [Unknown]
  - Depression [Recovered/Resolved]
  - Electrocardiogram QT prolonged [Unknown]
  - Sexual abuse [Unknown]
  - Psychotic symptom [Recovering/Resolving]
  - Hypersexuality [Recovered/Resolved]
  - Treatment noncompliance [Unknown]

NARRATIVE: CASE EVENT DATE: 20190327
